FAERS Safety Report 5594721-5 (Version None)
Quarter: 2007Q4

REPORT INFORMATION
  Report Type: 
  Country: None (occurrence: None)
  Receive Date: 20071218
  Receipt Date: 20070418
  Transmission Date: 20080405
  Serious: Yes (Hospitalization, Other)
  Sender: FDA-Public Use
  Company Number: 2006124642

PATIENT
  Age: 36 Year
  Sex: Female

DRUGS (3)
  1. BEXTRA [Suspect]
     Indication: BACK PAIN
     Dosage: (10 MG)
     Dates: start: 20020901
  2. BEXTRA [Suspect]
     Indication: LIMB OPERATION
     Dosage: (10 MG)
     Dates: start: 20020901
  3. VIOXX [Suspect]
     Dates: start: 20020901

REACTIONS (2)
  - DEEP VEIN THROMBOSIS [None]
  - PULMONARY EMBOLISM [None]
